FAERS Safety Report 9299825 (Version 1)
Quarter: 2013Q1

REPORT INFORMATION
  Report Type: Spontaneous
  Country: US (occurrence: None)
  Receive Date: 20121227
  Receipt Date: 20121227
  Transmission Date: 20140127
  Serious: Yes (Other)
  Sender: FDA-Public Use
  Company Number: PHEH2012US019295

PATIENT
  Age: 53 Year
  Sex: Male

DRUGS (15)
  1. AFINITOR [Suspect]
     Indication: TUBEROUS SCLEROSIS
     Dosage: 5 MG/DAY , ORAL
     Route: 048
     Dates: start: 20111111, end: 20120127
  2. AFINITOR [Suspect]
     Indication: RENAL CELL CARCINOMA
     Dosage: 5 MG/DAY , ORAL
     Route: 048
     Dates: start: 20111111, end: 20120127
  3. AFINITOR [Suspect]
     Dosage: 5 MG/DAY , ORAL
     Route: 048
     Dates: start: 20111111, end: 20120127
  4. TOPAMAX (TOPIRAMATE) [Concomitant]
  5. VIMPAT (LACOSAMIDE) [Concomitant]
  6. BENIZOL (TOLAZOLINE HYDROCHLORIDE) [Concomitant]
  7. CELEXA (CITALOPRAM HYDROBROMIDE) [Concomitant]
  8. CALCITROL (CALCIUM CARBONATE, ERGOCALCIFEROL, RETINOL) [Concomitant]
  9. SYNTHROID (LEVOTHYROXINE SODIUM) [Concomitant]
  10. ZYPREXA (OLANZAPINE) [Concomitant]
  11. OMEPRAZOLE (OMEPRAZOLE) [Concomitant]
  12. METROGEL (METRONIDAZOLE) GEL, 1% [Concomitant]
  13. DOXYCILIN (DOXYCYCLINE HYDROCHLORIDE) [Concomitant]
  14. TEMAZEPAM (TEMAZEPAM) [Concomitant]
  15. NIZORAL (KETOCONAZOLE) [Concomitant]

REACTIONS (5)
  - Convulsion [None]
  - Fall [None]
  - Laceration [None]
  - Confusional state [None]
  - Abnormal behaviour [None]
